FAERS Safety Report 23451118 (Version 1)
Quarter: 2024Q1

REPORT INFORMATION
  Report Type: Spontaneous
  Country: GB (occurrence: DE)
  Receive Date: 20240129
  Receipt Date: 20240129
  Transmission Date: 20240410
  Serious: Yes (Life-Threatening, Other)
  Sender: FDA-Public Use
  Company Number: DE-ROCHE-313090

PATIENT
  Age: 86 Year
  Sex: Female
  Weight: 56 kg

DRUGS (73)
  1. OMEPRAZOLE MAGNESIUM [Suspect]
     Active Substance: OMEPRAZOLE MAGNESIUM
     Indication: Prophylaxis against gastrointestinal ulcer
     Dosage: 20 MG, QD
     Route: 048
     Dates: start: 20000820, end: 20000917
  2. GLYBURIDE [Suspect]
     Active Substance: GLYBURIDE
     Indication: Diabetes mellitus
     Dosage: 3 DF
     Route: 048
     Dates: start: 20000820, end: 20000917
  3. MOLSIDOMINE [Suspect]
     Active Substance: MOLSIDOMINE
     Indication: Product used for unknown indication
     Dosage: 8 MG, QD
     Route: 048
     Dates: start: 20000820, end: 20000914
  4. PREDNISOLONE [Suspect]
     Active Substance: PREDNISOLONE
     Indication: Pemphigoid
     Dosage: 50 UNK
     Route: 048
  5. PREDNISOLONE [Suspect]
     Active Substance: PREDNISOLONE
     Indication: Dermatitis bullous
     Route: 048
     Dates: start: 20000820, end: 20000917
  6. PREDNISOLONE [Suspect]
     Active Substance: PREDNISOLONE
     Dosage: UNK
     Route: 048
     Dates: start: 20000820, end: 20000917
  7. PREDNISOLONE [Suspect]
     Active Substance: PREDNISOLONE
     Dosage: 80 MG, QD
     Route: 048
  8. PREDNISOLONE [Suspect]
     Active Substance: PREDNISOLONE
     Dosage: 60 UNK
     Route: 048
  9. PREDNISOLONE [Suspect]
     Active Substance: PREDNISOLONE
     Dosage: 40 MG, QD
     Route: 048
  10. FENTANYL [Suspect]
     Active Substance: FENTANYL\FENTANYL CITRATE
     Indication: Pain
     Dosage: 1 DF
     Route: 062
     Dates: start: 20000820, end: 20000916
  11. FENTANYL [Suspect]
     Active Substance: FENTANYL\FENTANYL CITRATE
     Dosage: 50 MCG, MICROGRAMS PER INHALATION, 72 - EVERY HOUR
     Route: 062
  12. FENTANYL [Suspect]
     Active Substance: FENTANYL\FENTANYL CITRATE
     Dosage: 150 MICROGRAMS PER INHALATION, 72 - EVERY HOUR
     Route: 062
     Dates: start: 20000820, end: 20000916
  13. FENTANYL [Suspect]
     Active Substance: FENTANYL\FENTANYL CITRATE
     Dosage: 125 MICROGRAMS PER INHALATION
     Route: 062
  14. FENTANYL [Suspect]
     Active Substance: FENTANYL\FENTANYL CITRATE
     Dosage: 1 DF
     Route: 062
     Dates: start: 20000820, end: 20000916
  15. FENTANYL [Suspect]
     Active Substance: FENTANYL\FENTANYL CITRATE
     Dosage: 1 DF
     Route: 062
     Dates: start: 20000820, end: 20000916
  16. GLYBURIDE [Suspect]
     Active Substance: GLYBURIDE
     Indication: Diabetes mellitus
     Dosage: 3 DOSAGE FORM
     Route: 048
     Dates: start: 20000820, end: 20000917
  17. FRAGMIN [Suspect]
     Active Substance: DALTEPARIN SODIUM
     Indication: Thrombosis prophylaxis
     Route: 058
  18. FRAGMIN [Suspect]
     Active Substance: DALTEPARIN SODIUM
     Indication: Coagulopathy
     Dosage: UNK
     Route: 058
  19. FRAGMIN [Suspect]
     Active Substance: DALTEPARIN SODIUM
     Indication: Coagulopathy
     Dosage: UNK
     Route: 058
     Dates: start: 20000820, end: 20000917
  20. ISOSORBIDE MONONITRATE [Suspect]
     Active Substance: ISOSORBIDE MONONITRATE
     Indication: Angina pectoris
     Dosage: 1 DF, QD
     Route: 048
     Dates: start: 20000820, end: 20000917
  21. LORMETAZEPAM [Suspect]
     Active Substance: LORMETAZEPAM
     Indication: Sedative therapy
  22. LORMETAZEPAM [Suspect]
     Active Substance: LORMETAZEPAM
     Indication: Sedation
     Dosage: 2 DF, 1 DOSE DAILY ()SUSPENSION AEROSOL
     Route: 048
     Dates: start: 20000913, end: 20000913
  23. NOVALGIN (METAMIZOLE SODIUM) [Suspect]
     Active Substance: METAMIZOLE SODIUM
     Indication: Pain
  24. NOVALGIN (METAMIZOLE SODIUM) [Suspect]
     Active Substance: METAMIZOLE SODIUM
     Indication: General symptom
     Route: 048
  25. NOVALGIN (METAMIZOLE SODIUM) [Suspect]
     Active Substance: METAMIZOLE SODIUM
     Indication: Pain
     Dosage: 20 GTT, 1 DOSE DAILY
     Route: 048
     Dates: start: 20000820, end: 20000917
  26. ESTRIOL [Suspect]
     Active Substance: ESTRIOL
     Indication: Vulvovaginal disorder
     Dosage: 1 DF, 1 DOSE DAILY
     Route: 067
     Dates: start: 20000820, end: 20000906
  27. PLAVIX [Suspect]
     Active Substance: CLOPIDOGREL BISULFATE
     Indication: Thrombosis prophylaxis
     Dosage: 75 MG, QD
     Route: 048
     Dates: start: 20000913, end: 20000917
  28. PLAVIX [Suspect]
     Active Substance: CLOPIDOGREL BISULFATE
     Indication: Coagulopathy
     Dosage: 75 MG, 1 DOSE DAILY
     Route: 048
     Dates: start: 20000913, end: 20000917
  29. CLEMASTINE FUMARATE [Suspect]
     Active Substance: CLEMASTINE FUMARATE
     Indication: Pemphigoid
     Dosage: 2 DF, QD
     Route: 048
     Dates: start: 20000820, end: 20000828
  30. CLEMASTINE FUMARATE [Suspect]
     Active Substance: CLEMASTINE FUMARATE
     Dosage: 4 UNK
     Route: 048
     Dates: start: 20000820, end: 20000828
  31. TORSEMIDE [Suspect]
     Active Substance: TORSEMIDE
     Indication: Cardiac failure
  32. TORSEMIDE [Suspect]
     Active Substance: TORSEMIDE
     Indication: Cardiac failure
     Dosage: 5 MG, 1 DOSE DAILY
     Route: 048
     Dates: start: 20000820, end: 20000917
  33. VIOXX [Suspect]
     Active Substance: ROFECOXIB
     Indication: Rheumatic disorder
  34. VIOXX [Suspect]
     Active Substance: ROFECOXIB
     Indication: Rheumatic disorder
     Dosage: 25 MG, 1 DOSE DAILY
     Route: 048
     Dates: start: 20000907, end: 20000917
  35. XYLOCAINE [Suspect]
     Active Substance: LIDOCAINE HYDROCHLORIDE
     Indication: Local anaesthesia
     Dosage: UNK
     Route: 058
     Dates: start: 20000913, end: 20000913
  36. ASPIRIN [Suspect]
     Active Substance: ASPIRIN
     Indication: Coagulopathy
     Dosage: 100 MG, QD
     Route: 048
     Dates: start: 20000828, end: 20000831
  37. ASPIRIN [Suspect]
     Active Substance: ASPIRIN
     Dosage: 100 MG, QD
     Route: 048
     Dates: start: 20000914, end: 20000917
  38. CLONIDINE HYDROCHLORIDE [Suspect]
     Active Substance: CLONIDINE HYDROCHLORIDE
     Indication: Product used for unknown indication
     Route: 042
  39. CLONIDINE HYDROCHLORIDE [Suspect]
     Active Substance: CLONIDINE HYDROCHLORIDE
     Route: 042
     Dates: start: 20000913, end: 20000913
  40. DIAZEPAM [Suspect]
     Active Substance: DIAZEPAM
     Indication: Product used for unknown indication
     Dosage: UNK
     Route: 042
     Dates: start: 20000913, end: 20000913
  41. INSULIN NOS [Suspect]
     Active Substance: INSULIN NOS
     Indication: Product used for unknown indication
     Dosage: SUBCUTANEOUS EXCEPT ON 13 SEP 2000 WHEN GIVEN INTRAVENOUSLY
     Route: 042
     Dates: start: 20000913, end: 20000913
  42. INSULIN NOS [Suspect]
     Active Substance: INSULIN NOS
     Indication: Product used for unknown indication
     Dosage: SUBCUTANEOUS EXCEPT ON 13 SEP 2000 WHEN GIVEN INTRAVENOUSLY.
     Route: 058
     Dates: start: 20000820, end: 20000917
  43. LORMETAZEPAM [Suspect]
     Active Substance: LORMETAZEPAM
     Indication: Product used for unknown indication
     Dosage: 2 DOSAGE FORM, QD
     Route: 048
     Dates: start: 20000913, end: 20000913
  44. MOLSIDOMINE [Suspect]
     Active Substance: MOLSIDOMINE
     Indication: Product used for unknown indication
     Dosage: 8 MG, QD
     Route: 048
     Dates: start: 20000820, end: 20000914
  45. NOREPINEPHRINE [Suspect]
     Active Substance: NOREPINEPHRINE
     Indication: Coronary artery disease
     Dosage: UNK
     Route: 042
     Dates: start: 20000913, end: 20000913
  46. NORTRIPTYLINE [Suspect]
     Active Substance: NORTRIPTYLINE
     Indication: Coronary artery disease
     Dosage: UNK
     Route: 042
     Dates: start: 20000913, end: 20000913
  47. COTRIM [Concomitant]
     Active Substance: SULFAMETHOXAZOLE\TRIMETHOPRIM
     Indication: Urinary tract infection
     Dosage: 1 DF, 1 DOSE DAILY
     Route: 048
     Dates: start: 20000916, end: 20000917
  48. PREDNISOLONE [Concomitant]
     Active Substance: PREDNISOLONE
     Indication: Pemphigoid
  49. PREDNISOLONE [Concomitant]
     Active Substance: PREDNISOLONE
     Indication: Dermatitis bullous
     Route: 048
     Dates: start: 20000820, end: 20000917
  50. FRAGMIN [Concomitant]
     Active Substance: DALTEPARIN SODIUM
     Indication: Coagulopathy
     Route: 058
     Dates: start: 20000820, end: 20000917
  51. BAXTER HEALTHCARE RINGERS [Concomitant]
     Indication: Electrolyte depletion
     Route: 042
     Dates: start: 20000913, end: 20000914
  52. CALCIUM [Concomitant]
     Active Substance: CALCIUM
     Dosage: 1 DF, 1 DOSE DAILY
     Route: 048
     Dates: start: 20000820, end: 20000917
  53. CALCIUM CHLORIDE [Concomitant]
     Active Substance: CALCIUM CHLORIDE
     Dosage: UNK
     Route: 042
     Dates: start: 20000913, end: 20000914
  54. CALCIUM CHLORIDE [Concomitant]
     Active Substance: CALCIUM CHLORIDE
     Dosage: UNK
     Dates: start: 20000820, end: 20000917
  55. CALCIUM CHLORIDE [Concomitant]
     Active Substance: CALCIUM CHLORIDE
     Dosage: UNK
  56. CALCIUM CHLORIDE [Concomitant]
     Active Substance: CALCIUM CHLORIDE
  57. CALCIUM CITRATE [Concomitant]
     Active Substance: CALCIUM CITRATE
     Dosage: 1 DOSAGE FORMS DAILY; 1 DOSAGE FORM, QD (1 DOSE DAILY)
     Route: 048
     Dates: start: 20000820, end: 20000917
  58. CALCIUM GLUCONATE [Concomitant]
     Active Substance: CALCIUM GLUCONATE
     Route: 048
     Dates: start: 20000820, end: 20000917
  59. FENTANYL [Concomitant]
     Active Substance: FENTANYL\FENTANYL CITRATE
     Dosage: 1 DOSAGE FORM
     Route: 062
     Dates: start: 20000820, end: 20000916
  60. GLYBURIDE [Concomitant]
     Active Substance: GLYBURIDE
     Dosage: 3DF
     Route: 048
     Dates: start: 20000820, end: 20000917
  61. DEXTROSE [Concomitant]
     Active Substance: DEXTROSE\DEXTROSE MONOHYDRATE
     Dosage: UNK
     Route: 042
     Dates: start: 20000913, end: 20000913
  62. DEXTROSE [Concomitant]
     Active Substance: DEXTROSE\DEXTROSE MONOHYDRATE
     Dosage: UNK
  63. DEXTROSE [Concomitant]
     Active Substance: DEXTROSE\DEXTROSE MONOHYDRATE
     Dosage: UNK
  64. MOLSIDOMINE [Concomitant]
     Active Substance: MOLSIDOMINE
     Dosage: 1 DF, 1 DOSE DAILY
     Route: 048
     Dates: start: 20000820, end: 20000914
  65. NOREPINEPHRINE [Concomitant]
     Active Substance: NOREPINEPHRINE
     Route: 042
     Dates: start: 20000913, end: 20000913
  66. OMEPRAZOLE [Concomitant]
     Active Substance: OMEPRAZOLE
     Dosage: 20 MG, 1 DOSE DAILY
     Route: 048
     Dates: start: 20000820, end: 20000917
  67. OMEPRAZOLE MAGNESIUM [Concomitant]
     Active Substance: OMEPRAZOLE MAGNESIUM
     Dosage: 20 MG, QD
     Route: 048
     Dates: start: 20000820, end: 20000917
  68. POTASSIUM CHLORIDE [Concomitant]
     Active Substance: POTASSIUM CHLORIDE
     Dosage: UNK
     Dates: start: 20000820, end: 20000917
  69. POTASSIUM CHLORIDE [Concomitant]
     Active Substance: POTASSIUM CHLORIDE
     Dosage: UNK
     Route: 042
     Dates: start: 20000913, end: 20000914
  70. POTASSIUM CHLORIDE [Concomitant]
     Active Substance: POTASSIUM CHLORIDE
     Dosage: UNK
  71. PREDNISONE [Concomitant]
     Active Substance: PREDNISONE
     Route: 065
  72. SODIUM CHLORIDE [Concomitant]
     Active Substance: SODIUM CHLORIDE
     Route: 042
     Dates: start: 20000913, end: 20000914
  73. SULFAMETHOXAZOLE [Concomitant]
     Active Substance: SULFAMETHOXAZOLE
     Dosage: UNK
     Dates: start: 20000916, end: 20000917

REACTIONS (6)
  - Erythema [Recovered/Resolved]
  - Toxic epidermal necrolysis [Recovered/Resolved]
  - Blister [Recovered/Resolved]
  - Genital erosion [Recovered/Resolved]
  - Mouth ulceration [Recovered/Resolved]
  - Conjunctivitis [Recovered/Resolved]

NARRATIVE: CASE EVENT DATE: 20000916
